FAERS Safety Report 23480970 (Version 1)
Quarter: 2024Q1

REPORT INFORMATION
  Report Type: Spontaneous
  Country: TR (occurrence: TR)
  Receive Date: 20240205
  Receipt Date: 20240205
  Transmission Date: 20240409
  Serious: Yes (Hospitalization)
  Sender: FDA-Public Use
  Company Number: TR-MankindUS-000134

PATIENT
  Age: 12 Year
  Sex: Male

DRUGS (2)
  1. HALOPERIDOL DECANOATE [Interacting]
     Active Substance: HALOPERIDOL DECANOATE
     Indication: Tic
     Dosage: 0.5 MG/DAY
  2. CLARITHROMYCIN [Interacting]
     Active Substance: CLARITHROMYCIN
     Indication: Upper respiratory tract infection
     Dosage: 125 MG/DAY FOR 10 DAYS

REACTIONS (2)
  - Extrapyramidal disorder [Recovered/Resolved]
  - Drug interaction [Unknown]
